FAERS Safety Report 4557577-5 (Version None)
Quarter: 2005Q1

REPORT INFORMATION
  Report Type: 
  Country: None (occurrence: None)
  Receive Date: 20050120
  Receipt Date: 20040802
  Transmission Date: 20050727
  Serious: Yes (Hospitalization, Disabling, Other)
  Sender: FDA-Public Use
  Company Number: US-MERCK-0408USA00139

PATIENT
  Age: 49 Year
  Sex: Female
  Weight: 64 kg

DRUGS (3)
  1. VIOXX [Suspect]
     Indication: CARPAL TUNNEL SYNDROME
     Route: 048
     Dates: start: 20020718, end: 20020718
  2. VIOXX [Suspect]
     Indication: OSTEOARTHRITIS
     Route: 048
     Dates: start: 20000503
  3. VIOXX [Suspect]
     Indication: ARTHRALGIA
     Route: 048
     Dates: start: 20000503

REACTIONS (37)
  - ACCIDENT AT WORK [None]
  - ACUTE SINUSITIS [None]
  - ARTHRALGIA [None]
  - ASTHENIA [None]
  - ATHEROSCLEROSIS [None]
  - BENIGN NEOPLASM [None]
  - BLOOD CHOLESTEROL INCREASED [None]
  - BLOOD TRIGLYCERIDES INCREASED [None]
  - BRONCHITIS ACUTE [None]
  - CAROTID ARTERY STENOSIS [None]
  - CEREBRAL ARTERY OCCLUSION [None]
  - CEREBRAL ARTERY STENOSIS [None]
  - CEREBROVASCULAR ACCIDENT [None]
  - CONJUNCTIVITIS [None]
  - CUBITAL TUNNEL SYNDROME [None]
  - DIZZINESS [None]
  - EMOTIONAL DISTRESS [None]
  - EPIDERMAL NAEVUS [None]
  - FATIGUE [None]
  - HEMIANOPIA HOMONYMOUS [None]
  - HIGH DENSITY LIPOPROTEIN DECREASED [None]
  - HYPERTENSION [None]
  - HYPOACUSIS [None]
  - HYPOAESTHESIA [None]
  - HYPOTENSION [None]
  - LOW DENSITY LIPOPROTEIN INCREASED [None]
  - MALAISE [None]
  - PAIN IN EXTREMITY [None]
  - PARAESTHESIA [None]
  - PHARYNGITIS [None]
  - RADIAL TUNNEL SYNDROME [None]
  - TEMPERATURE INTOLERANCE [None]
  - THERMAL BURN [None]
  - TRANSIENT ISCHAEMIC ATTACK [None]
  - ULNAR TUNNEL SYNDROME [None]
  - VASCULAR STENOSIS [None]
  - X-RAY LIMB ABNORMAL [None]
